FAERS Safety Report 19970553 (Version 1)
Quarter: 2021Q4

REPORT INFORMATION
  Report Type: Spontaneous
  Country: US (occurrence: US)
  Receive Date: 20211019
  Receipt Date: 20211019
  Transmission Date: 20220303
  Serious: Yes (Other)
  Sender: FDA-Public Use
  Company Number: US-PFIZER INC-202101334975

PATIENT
  Age: 21 Year
  Sex: Male
  Weight: 104.2 kg

DRUGS (2)
  1. ZIRABEV [Suspect]
     Active Substance: BEVACIZUMAB-BVZR
     Indication: Glioblastoma
     Dosage: 400 MG, CYCLIC, (1040MG EVERY 2 WEEKS)
     Dates: start: 20211005
  2. ZIRABEV [Suspect]
     Active Substance: BEVACIZUMAB-BVZR
     Dosage: 100 MG, CYCLIC, (1040MG EVERY 2 WEEKS)
     Dates: start: 20211005

REACTIONS (1)
  - Seizure [Recovered/Resolved]

NARRATIVE: CASE EVENT DATE: 20211006
